FAERS Safety Report 20316291 (Version 1)
Quarter: 2022Q1

REPORT INFORMATION
  Report Type: Spontaneous
  Country: JP (occurrence: JP)
  Receive Date: 20220110
  Receipt Date: 20220110
  Transmission Date: 20220424
  Serious: Yes (Hospitalization, Other)
  Sender: FDA-Public Use
  Company Number: JP-BAYER-2021A243365

PATIENT
  Age: 87 Year
  Sex: Male
  Weight: 55 kg

DRUGS (7)
  1. RIVAROXABAN [Interacting]
     Active Substance: RIVAROXABAN
     Indication: Cerebral infarction
     Dosage: DAILY DOSE 10MG
     Route: 048
     Dates: start: 2015
  2. ASPIRIN [Interacting]
     Active Substance: ASPIRIN
     Indication: Cerebral infarction
     Dosage: DAILY DOSE 100MG
     Route: 048
     Dates: start: 2005
  3. CILOSTAZOL [Interacting]
     Active Substance: CILOSTAZOL
     Indication: Cerebral infarction
     Dosage: DAILY DOSE 200G
     Route: 048
     Dates: start: 2005
  4. PROPOFOL [Concomitant]
     Active Substance: PROPOFOL
     Dosage: UNK
     Dates: start: 20151026, end: 20151026
  5. REMIFENTANIL [Concomitant]
     Active Substance: REMIFENTANIL
     Dosage: UNK
     Dates: start: 20151026, end: 20151026
  6. ROCURONIUM BROMIDE [Concomitant]
     Active Substance: ROCURONIUM BROMIDE
     Dosage: UNK
     Dates: start: 20151026, end: 20151026
  7. SUGAMMADEX SODIUM [Concomitant]
     Active Substance: SUGAMMADEX SODIUM
     Dosage: DAILY DOSE 100 MG
     Dates: start: 20151026, end: 20151026

REACTIONS (4)
  - Pulmonary alveolar haemorrhage [Recovered/Resolved]
  - Hypoxia [Recovering/Resolving]
  - Labelled drug-drug interaction medication error [Recovered/Resolved]
  - Drug interaction [Unknown]

NARRATIVE: CASE EVENT DATE: 20151026
